FAERS Safety Report 18388864 (Version 3)
Quarter: 2021Q2

REPORT INFORMATION
  Report Type: Spontaneous
  Country: US (occurrence: US)
  Receive Date: 20201015
  Receipt Date: 20210625
  Transmission Date: 20210717
  Serious: Yes (Other)
  Sender: FDA-Public Use
  Company Number: US-GILEAD-2020-0498938

PATIENT
  Age: 49 Year
  Sex: Female
  Weight: 58.97 kg

DRUGS (22)
  1. RANITIDINE. [Concomitant]
     Active Substance: RANITIDINE
  2. SUSTIVA [Concomitant]
     Active Substance: EFAVIRENZ
  3. STRIBILD [Suspect]
     Active Substance: COBICISTAT\ELVITEGRAVIR\EMTRICITABINE\TENOFOVIR DISOPROXIL FUMARATE
     Dosage: UNK
     Route: 048
     Dates: start: 201611, end: 202006
  4. CORTISONE [Concomitant]
     Active Substance: CORTISONE
  5. PANTOPRAZOLE [Concomitant]
     Active Substance: PANTOPRAZOLE
  6. PREDNISOLONE. [Concomitant]
     Active Substance: PREDNISOLONE
  7. PREDNISONE. [Concomitant]
     Active Substance: PREDNISONE
  8. ESOMEPRAZOLE. [Concomitant]
     Active Substance: ESOMEPRAZOLE MAGNESIUM
  9. FAMOTIDINE. [Concomitant]
     Active Substance: FAMOTIDINE
  10. ASPIRIN [ACETYLSALICYLIC ACID] [Concomitant]
     Active Substance: ASPIRIN
  11. TRUVADA [Suspect]
     Active Substance: EMTRICITABINE\TENOFOVIR DISOPROXIL FUMARATE
     Indication: HIV INFECTION
     Dosage: UNK
     Route: 065
     Dates: start: 201208, end: 201611
  12. TYLENOL [Concomitant]
     Active Substance: ACETAMINOPHEN
  13. BACTRIM [Concomitant]
     Active Substance: SULFAMETHOXAZOLE\TRIMETHOPRIM
  14. TRIAMCINOLONE [Concomitant]
     Active Substance: TRIAMCINOLONE
  15. ALPRAZOLAM. [Concomitant]
     Active Substance: ALPRAZOLAM
  16. STRIBILD [Suspect]
     Active Substance: COBICISTAT\ELVITEGRAVIR\EMTRICITABINE\TENOFOVIR DISOPROXIL FUMARATE
     Indication: HIV INFECTION
     Dosage: UNK
     Route: 048
     Dates: start: 201611, end: 202001
  17. AMOXICILLIN. [Concomitant]
     Active Substance: AMOXICILLIN
  18. OMEPRAZOLE. [Concomitant]
     Active Substance: OMEPRAZOLE
  19. KALETRA [Concomitant]
     Active Substance: LOPINAVIR\RITONAVIR
  20. ACYCLOVIR [ACICLOVIR] [Concomitant]
     Active Substance: ACYCLOVIR
  21. METHYLPREDNISOLONE. [Concomitant]
     Active Substance: METHYLPREDNISOLONE
  22. ISENTRESS [Concomitant]
     Active Substance: RALTEGRAVIR POTASSIUM

REACTIONS (6)
  - Asthenia [Unknown]
  - Emotional distress [Unknown]
  - Pain [Unknown]
  - End stage renal disease [Not Recovered/Not Resolved]
  - Renal failure [Unknown]
  - Nausea [Unknown]

NARRATIVE: CASE EVENT DATE: 201412
